FAERS Safety Report 25808242 (Version 1)
Quarter: 2025Q3

REPORT INFORMATION
  Report Type: Spontaneous
  Country: TR (occurrence: TR)
  Receive Date: 20250916
  Receipt Date: 20250916
  Transmission Date: 20251021
  Serious: Yes (Other)
  Sender: SANDOZ
  Company Number: TR-002147023-NVSC2025TR141867

PATIENT

DRUGS (2)
  1. CONCERTA [Suspect]
     Active Substance: METHYLPHENIDATE HYDROCHLORIDE
     Indication: Attention deficit hyperactivity disorder
     Route: 065
  2. RITALIN [Suspect]
     Active Substance: METHYLPHENIDATE HYDROCHLORIDE
     Indication: Attention deficit hyperactivity disorder
     Route: 065

REACTIONS (2)
  - Mental impairment [Unknown]
  - Anxiety [Unknown]
